FAERS Safety Report 12176066 (Version 2)
Quarter: 2016Q2

REPORT INFORMATION
  Report Type: Spontaneous
  Country: FR (occurrence: FR)
  Receive Date: 20160314
  Receipt Date: 20160426
  Transmission Date: 20160815
  Serious: Yes (Hospitalization)
  Sender: FDA-Public Use
  Company Number: FR-PFIZER INC-2016132392

PATIENT
  Age: 54 Year
  Sex: Female

DRUGS (1)
  1. MEDROL [Suspect]
     Active Substance: METHYLPREDNISOLONE
     Dosage: 16 MG, UNK

REACTIONS (5)
  - Nausea [Unknown]
  - Dysgeusia [Unknown]
  - Abdominal pain upper [Unknown]
  - Sedation [Unknown]
  - Vertigo [Unknown]

NARRATIVE: CASE EVENT DATE: 20160301
